FAERS Safety Report 15589714 (Version 1)
Quarter: 2018Q4

REPORT INFORMATION
  Report Type: Report from Study
  Country: CN (occurrence: CN)
  Receive Date: 20181106
  Receipt Date: 20181106
  Transmission Date: 20190205
  Serious: Yes (Other)
  Sender: FDA-Public Use
  Company Number: CN-ROCHE-2206045

PATIENT

DRUGS (12)
  1. CARBOPLATIN. [Suspect]
     Active Substance: CARBOPLATIN
     Indication: NON-SMALL CELL LUNG CANCER
     Route: 065
  2. BEVACIZUMAB. [Suspect]
     Active Substance: BEVACIZUMAB
     Indication: NON-SMALL CELL LUNG CANCER
     Route: 065
  3. PEMETREXED. [Suspect]
     Active Substance: PEMETREXED
     Indication: NON-SMALL CELL LUNG CANCER
     Route: 065
  4. LOBAPLATIN [Suspect]
     Active Substance: LOBAPLATIN
     Indication: NON-SMALL CELL LUNG CANCER
     Route: 065
  5. GEFITINIB. [Suspect]
     Active Substance: GEFITINIB
     Indication: NON-SMALL CELL LUNG CANCER
     Route: 065
  6. GEMCITABINE [Suspect]
     Active Substance: GEMCITABINE\GEMCITABINE HYDROCHLORIDE
     Indication: NON-SMALL CELL LUNG CANCER
     Route: 065
  7. ABRAXANE [Suspect]
     Active Substance: PACLITAXEL
     Indication: NON-SMALL CELL LUNG CANCER
     Route: 065
  8. NEDAPLATIN [Suspect]
     Active Substance: NEDAPLATIN
     Indication: NON-SMALL CELL LUNG CANCER
     Route: 065
  9. DOCETAXEL. [Suspect]
     Active Substance: DOCETAXEL
     Indication: NON-SMALL CELL LUNG CANCER
     Route: 065
  10. ERLOTINIB [Suspect]
     Active Substance: ERLOTINIB
     Indication: NON-SMALL CELL LUNG CANCER
     Route: 065
  11. CISPLATIN. [Suspect]
     Active Substance: CISPLATIN
     Indication: NON-SMALL CELL LUNG CANCER
     Route: 065
  12. IRINOTECAN [Suspect]
     Active Substance: IRINOTECAN
     Indication: NON-SMALL CELL LUNG CANCER
     Route: 065

REACTIONS (10)
  - Fatigue [Unknown]
  - Hypertension [Unknown]
  - Rash [Unknown]
  - Bone marrow failure [Unknown]
  - Haemorrhage [Recovering/Resolving]
  - Proteinuria [Unknown]
  - Granulocytopenia [Unknown]
  - Diarrhoea [Unknown]
  - Thrombosis [Recovering/Resolving]
  - Neutrophil count decreased [Unknown]
